FAERS Safety Report 6676728-X (Version None)
Quarter: 2010Q2

REPORT INFORMATION
  Report Type: 
  Country: None (occurrence: None)
  Receive Date: 20100412
  Receipt Date: 20100330
  Transmission Date: 20101027
  Serious: Yes (Other)
  Sender: FDA-Public Use
  Company Number: JP-ROCHE-688102

PATIENT
  Sex: Male

DRUGS (26)
  1. AVASTIN [Suspect]
     Indication: RECTAL CANCER
     Route: 041
     Dates: start: 20100112, end: 20100112
  2. AVASTIN [Suspect]
     Route: 041
     Dates: start: 20100202, end: 20100202
  3. AVASTIN [Suspect]
     Route: 041
     Dates: start: 20100223, end: 20100223
  4. XELODA [Suspect]
     Indication: RECTAL CANCER
     Dosage: DRUG NAME:XELODA 300, DOSE DECRESED
     Route: 048
     Dates: start: 20100112, end: 20100125
  5. XELODA [Suspect]
     Route: 048
     Dates: start: 20100202, end: 20100215
  6. XELODA [Suspect]
     Route: 048
     Dates: start: 20100226, end: 20100311
  7. ELPLAT [Suspect]
     Indication: RECTAL CANCER
     Route: 041
     Dates: start: 20070403, end: 20080625
  8. ELPLAT [Suspect]
     Route: 041
     Dates: start: 20100112, end: 20100112
  9. ELPLAT [Suspect]
     Route: 041
     Dates: start: 20100202, end: 20100202
  10. ELPLAT [Suspect]
     Route: 041
     Dates: start: 20100223, end: 20100223
  11. DOXAZOSIN MESYLATE [Concomitant]
     Route: 048
     Dates: start: 20070403
  12. NITOROL [Concomitant]
     Route: 048
     Dates: start: 20070403
  13. LANDEL [Concomitant]
     Route: 048
     Dates: start: 20070403
  14. HYPEN [Concomitant]
     Route: 048
     Dates: start: 20070403
  15. OMEPRAL [Concomitant]
     Route: 048
     Dates: start: 20070403
  16. OMEPRAL [Concomitant]
     Route: 048
     Dates: start: 20070403
  17. GASMOTIN [Concomitant]
     Route: 048
     Dates: start: 20070403
  18. IRINOTECAN HYDROCHLORIDE [Concomitant]
     Route: 041
     Dates: start: 20080711, end: 20090107
  19. LEUCOVORIN CALCIUM [Concomitant]
     Route: 041
     Dates: start: 20070403, end: 20080625
  20. LEUCOVORIN CALCIUM [Concomitant]
     Route: 041
     Dates: start: 20080711, end: 20090107
  21. RAMELTEON [Concomitant]
     Route: 041
     Dates: start: 20070403, end: 20080625
  22. DECADRON [Concomitant]
     Route: 041
     Dates: start: 20070403, end: 20080625
  23. FLUOROURACIL [Concomitant]
     Route: 040
     Dates: start: 20070403, end: 20080625
  24. FLUOROURACIL [Concomitant]
     Route: 040
     Dates: start: 20080711, end: 20090107
  25. FLUOROURACIL [Concomitant]
     Route: 041
     Dates: start: 20070403, end: 20080627
  26. FLUOROURACIL [Concomitant]
     Route: 041
     Dates: start: 20080711, end: 20090107

REACTIONS (4)
  - ANAPHYLACTIC SHOCK [None]
  - HYPOAESTHESIA [None]
  - SKIN CHAPPED [None]
  - STOMATITIS [None]
